FAERS Safety Report 17151545 (Version 1)
Quarter: 2019Q4

REPORT INFORMATION
  Report Type: Spontaneous
  Country: US (occurrence: US)
  Receive Date: 20191212
  Receipt Date: 20191212
  Transmission Date: 20200122
  Serious: Yes (Hospitalization, Other)
  Sender: FDA-Public Use
  Company Number: None

PATIENT
  Age: 3 Year
  Sex: Male

DRUGS (2)
  1. LEVOCARNITIN SOL 1/GM/10ML [Concomitant]
     Dates: start: 20191015
  2. NORDITROPIN [Suspect]
     Active Substance: SOMATROPIN
     Indication: BODY HEIGHT BELOW NORMAL
     Dosage: ?          OTHER FREQUENCY:NIGHTLY AT BEDTIME;?
     Route: 058
     Dates: start: 20180920

REACTIONS (1)
  - Hospitalisation [None]
